FAERS Safety Report 14731057 (Version 1)
Quarter: 2018Q2

REPORT INFORMATION
  Report Type: Spontaneous
  Country: DE (occurrence: DE)
  Receive Date: 20180406
  Receipt Date: 20180406
  Transmission Date: 20180711
  Serious: Yes (Other)
  Sender: FDA-Public Use
  Company Number: DE-B.I. PHARMACEUTICALS,INC./RIDGEFIELD-2018-BI-018988

PATIENT
  Age: 61 Year
  Sex: Male
  Weight: 85 kg

DRUGS (3)
  1. CANDESARTAN. [Concomitant]
     Active Substance: CANDESARTAN
     Indication: PRODUCT USED FOR UNKNOWN INDICATION
     Route: 065
  2. ELIQUIS [Suspect]
     Active Substance: APIXABAN
     Indication: CEREBROVASCULAR ACCIDENT PROPHYLAXIS
     Route: 065
  3. TAMSULOSINA [Suspect]
     Active Substance: TAMSULOSIN HYDROCHLORIDE
     Indication: PRODUCT USED FOR UNKNOWN INDICATION
     Route: 065

REACTIONS (12)
  - Coagulation time prolonged [Unknown]
  - Blood urine present [Unknown]
  - Memory impairment [Unknown]
  - Gastric disorder [Unknown]
  - Pulpitis dental [Unknown]
  - Drug dose omission [Unknown]
  - Dry skin [Unknown]
  - Haemorrhage urinary tract [Unknown]
  - Laceration [Unknown]
  - Skin disorder [Unknown]
  - Pain [Unknown]
  - Pruritus [Unknown]
